FAERS Safety Report 24750539 (Version 2)
Quarter: 2024Q4

REPORT INFORMATION
  Report Type: Report from Study
  Country: FR (occurrence: FR)
  Receive Date: 20241218
  Receipt Date: 20241227
  Transmission Date: 20250114
  Serious: Yes (Hospitalization)
  Sender: ABBVIE
  Company Number: FR-ABBVIE-6050286

PATIENT
  Age: 81 Year
  Sex: Female

DRUGS (2)
  1. FOSCARBIDOPA\FOSLEVODOPA [Suspect]
     Active Substance: FOSCARBIDOPA\FOSLEVODOPA
     Indication: Product used for unknown indication
     Dosage: STARTING DOSE: 0.6ML/H, CONTINUOUS FLOW RATE: 0.58ML/H?DRUG STOP DATE: 2024
     Route: 058
     Dates: start: 20241125
  2. FOSCARBIDOPA\FOSLEVODOPA [Suspect]
     Active Substance: FOSCARBIDOPA\FOSLEVODOPA
     Dosage: EXTRA DOSE: 0.15ML, FIRST ADMIN DATE 2024
     Route: 058
     Dates: end: 20241212

REACTIONS (4)
  - General physical health deterioration [Not Recovered/Not Resolved]
  - Micturition disorder [Not Recovered/Not Resolved]
  - Defaecation disorder [Not Recovered/Not Resolved]
  - Injection site induration [Not Recovered/Not Resolved]

NARRATIVE: CASE EVENT DATE: 20241212
